FAERS Safety Report 11312204 (Version 4)
Quarter: 2015Q4

REPORT INFORMATION
  Report Type: Report from Study
  Country: JP (occurrence: JP)
  Receive Date: 20150727
  Receipt Date: 20151211
  Transmission Date: 20160304
  Serious: Yes (Other)
  Sender: FDA-Public Use
  Company Number: JP-OTSUKA-2015_005847

PATIENT

DRUGS (20)
  1. TOLVAPTAN [Suspect]
     Active Substance: TOLVAPTAN
     Indication: FLUID RETENTION
     Dosage: 3.75 MG, QD (IN THE MORNING)
     Route: 048
     Dates: start: 20150126, end: 20150127
  2. TOLVAPTAN [Suspect]
     Active Substance: TOLVAPTAN
     Dosage: 15 MG, QD (IN THE MORNING)
     Route: 048
     Dates: start: 20150413, end: 20150708
  3. LASIX M [Suspect]
     Active Substance: FUROSEMIDE
     Dosage: 40 MG, DAILY DOSE
     Route: 048
     Dates: start: 20150425, end: 20150506
  4. LASIX M [Suspect]
     Active Substance: FUROSEMIDE
     Dosage: 20 MG, DAILY DOSE
     Route: 048
     Dates: start: 20150507
  5. THYRADIN S [Concomitant]
     Active Substance: LEVOTHYROXINE SODIUM
     Dosage: 100 ?G, DAILY DOSE
     Route: 048
     Dates: start: 20150413
  6. TOLVAPTAN [Suspect]
     Active Substance: TOLVAPTAN
     Dosage: 7.5 MG, QD (IN THE MORNING)
     Route: 048
     Dates: start: 20150128, end: 20150412
  7. LASIX M [Suspect]
     Active Substance: FUROSEMIDE
     Dosage: 60 MG, DAILY DOSE
     Route: 048
     Dates: start: 20150116, end: 20150126
  8. ALDACTONE A [Concomitant]
     Active Substance: SPIRONOLACTONE
     Dosage: 50 MG, DAILY DOSE
     Route: 048
     Dates: start: 20150127, end: 20150208
  9. ALDACTONE A [Concomitant]
     Active Substance: SPIRONOLACTONE
     Dosage: 50 MG, DAILY DOSE
     Route: 048
     Dates: start: 20150430, end: 20150506
  10. LASIX M [Concomitant]
     Active Substance: FUROSEMIDE
     Dosage: 1 DF, DAILY DOSE
     Route: 042
     Dates: start: 20150615, end: 20150708
  11. ALDACTONE A [Concomitant]
     Active Substance: SPIRONOLACTONE
     Indication: FLUID RETENTION
     Dosage: 50 MG, DAILY DOSE
     Route: 048
     Dates: end: 20150115
  12. PIARLE [Concomitant]
     Indication: PRODUCT USED FOR UNKNOWN INDICATION
     Dosage: 20.4 G, DAILY DOSE
     Route: 048
     Dates: start: 20150318
  13. LASIX M [Suspect]
     Active Substance: FUROSEMIDE
     Dosage: 40 MG, DAILY DOSE
     Route: 048
     Dates: start: 20150127, end: 20150208
  14. LASIX M [Suspect]
     Active Substance: FUROSEMIDE
     Indication: FLUID RETENTION
     Dosage: 40 MG, DAILY DOSE
     Route: 048
     Dates: end: 20150115
  15. THYRADIN S [Concomitant]
     Active Substance: LEVOTHYROXINE SODIUM
     Indication: PRODUCT USED FOR UNKNOWN INDICATION
     Dosage: 70 ?G, DAILY DOSE
     Route: 048
     Dates: end: 20150412
  16. AMINOLEBAN [Concomitant]
     Active Substance: AMINO ACIDS
     Indication: PRODUCT USED FOR UNKNOWN INDICATION
     Dosage: 200 ML, DAILY DOSE
     Route: 042
     Dates: start: 20150424, end: 20150518
  17. AMINOLEBAN [Concomitant]
     Active Substance: AMINO ACIDS
     Dosage: 200 ML, DAILY DOSE
     Route: 042
     Dates: start: 20150615, end: 20150708
  18. LASIX M [Concomitant]
     Active Substance: FUROSEMIDE
     Indication: FLUID RETENTION
     Dosage: 1 DF, DAILY DOSE
     Route: 042
     Dates: start: 20150424, end: 20150430
  19. ALDACTONE A [Concomitant]
     Active Substance: SPIRONOLACTONE
     Dosage: 75 MG, DAILY DOSE
     Route: 048
     Dates: start: 20150116, end: 20150126
  20. ALDACTONE A [Concomitant]
     Active Substance: SPIRONOLACTONE
     Dosage: 25 MG, DAILY DOSE
     Route: 048
     Dates: start: 20150209, end: 20150429

REACTIONS (13)
  - Blood urea increased [Not Recovered/Not Resolved]
  - Blood creatinine increased [Not Recovered/Not Resolved]
  - Pain in extremity [Unknown]
  - Overdose [Unknown]
  - Blood urea increased [Recovered/Resolved]
  - Pruritus [Recovering/Resolving]
  - Thirst [Not Recovered/Not Resolved]
  - Neurogenic bladder [Unknown]
  - Cough [Unknown]
  - Ammonia increased [Recovered/Resolved]
  - Gamma-glutamyltransferase increased [Not Recovered/Not Resolved]
  - Blood uric acid increased [Not Recovered/Not Resolved]
  - Eye discharge [Unknown]

NARRATIVE: CASE EVENT DATE: 20150126
